FAERS Safety Report 8998079 (Version 3)
Quarter: 2013Q2

REPORT INFORMATION
  Report Type: Spontaneous
  Country: IT (occurrence: IT)
  Receive Date: 20130104
  Receipt Date: 20130402
  Transmission Date: 20140414
  Serious: Yes (Other)
  Sender: FDA-Public Use
  Company Number: IT-PFIZER INC-2012309215

PATIENT
  Age: 22 Year
  Sex: Female

DRUGS (2)
  1. TROZOCINA [Suspect]
     Indication: BRONCHITIS
     Dosage: 500 MG, 1X/DAY
     Route: 048
     Dates: start: 20120926, end: 20120928
  2. TRANEX [Concomitant]
     Indication: OLIGOMENORRHOEA
     Dosage: 250 MG; UNK
     Route: 048
     Dates: start: 20120925, end: 20120928

REACTIONS (3)
  - Diarrhoea haemorrhagic [Recovering/Resolving]
  - Abdominal pain [Recovering/Resolving]
  - Diarrhoea [Recovering/Resolving]
